FAERS Safety Report 14401005 (Version 1)
Quarter: 2018Q1

REPORT INFORMATION
  Report Type: Spontaneous
  Country: JP (occurrence: JP)
  Receive Date: 20180117
  Receipt Date: 20180117
  Transmission Date: 20180509
  Serious: Yes (Life-Threatening, Hospitalization, Congenital Anomaly)
  Sender: FDA-Public Use
  Company Number: JP-ASTELLAS-2018JP000342

PATIENT
  Age: 14 Day
  Sex: Male
  Weight: .44 kg

DRUGS (17)
  1. POLARAMINE [Concomitant]
     Active Substance: DEXCHLORPHENIRAMINE MALEATE
     Indication: FOETAL EXPOSURE DURING PREGNANCY
     Route: 064
     Dates: end: 20170428
  2. NIFEDIPINE. [Concomitant]
     Active Substance: NIFEDIPINE
     Indication: FOETAL EXPOSURE DURING PREGNANCY
     Route: 064
     Dates: start: 20170322, end: 20170501
  3. PROGRAF [Suspect]
     Active Substance: TACROLIMUS\TACROLIMUS ANHYDROUS
     Indication: FOETAL EXPOSURE DURING PREGNANCY
     Route: 064
     Dates: start: 2016
  4. LOXOPROFEN                         /00890702/ [Concomitant]
     Active Substance: LOXOPROFEN
     Indication: FOETAL EXPOSURE DURING PREGNANCY
     Dosage: 60 MG, WHEN PAIN APPEARED
     Route: 064
  5. ALDOMET [Concomitant]
     Active Substance: METHYLDOPA
     Indication: FOETAL EXPOSURE DURING PREGNANCY
     Route: 064
     Dates: start: 20170220, end: 20170501
  6. FAMOTIDINE. [Concomitant]
     Active Substance: FAMOTIDINE
     Indication: FOETAL EXPOSURE DURING PREGNANCY
     Route: 064
     Dates: start: 20170429, end: 20170501
  7. PREDONINE [Concomitant]
     Active Substance: PREDNISOLONE
     Indication: FOETAL EXPOSURE DURING PREGNANCY
     Route: 064
     Dates: start: 2016
  8. AZULENE GLUTAMINE [Concomitant]
     Indication: FOETAL EXPOSURE DURING PREGNANCY
     Dosage: 2 G IN TOTAL/DAY, THRICE DAILY
     Route: 064
     Dates: end: 20170428
  9. PROGRAF [Suspect]
     Active Substance: TACROLIMUS\TACROLIMUS ANHYDROUS
     Route: 064
     Dates: end: 20170428
  10. BAYASPIRIN [Concomitant]
     Active Substance: ASPIRIN
     Indication: FOETAL EXPOSURE DURING PREGNANCY
     Route: 064
     Dates: start: 2016, end: 20170501
  11. NIFEDIPINE. [Concomitant]
     Active Substance: NIFEDIPINE
     Indication: MATERNAL EXPOSURE DURING BREAST FEEDING
     Route: 063
     Dates: start: 20170504, end: 201710
  12. ALDOMET [Concomitant]
     Active Substance: METHYLDOPA
     Indication: MATERNAL EXPOSURE DURING BREAST FEEDING
     Route: 063
     Dates: start: 20170504, end: 201710
  13. PREDONINE [Concomitant]
     Active Substance: PREDNISOLONE
     Indication: MATERNAL EXPOSURE DURING BREAST FEEDING
     Route: 064
     Dates: end: 20170501
  14. PREDONINE [Concomitant]
     Active Substance: PREDNISOLONE
     Route: 063
     Dates: start: 20170504, end: 201710
  15. BAYASPIRIN [Concomitant]
     Active Substance: ASPIRIN
     Indication: MATERNAL EXPOSURE DURING BREAST FEEDING
     Route: 063
     Dates: start: 20170504, end: 201710
  16. REBAMIPIDE [Concomitant]
     Active Substance: REBAMIPIDE
     Indication: FOETAL EXPOSURE DURING PREGNANCY
     Dosage: 100 MG, WHEN PAIN APPEARED
     Route: 064
  17. FAMOTIDINE. [Concomitant]
     Active Substance: FAMOTIDINE
     Indication: MATERNAL EXPOSURE DURING BREAST FEEDING
     Route: 063
     Dates: start: 20170504, end: 201710

REACTIONS (2)
  - Intestinal perforation [Recovered/Resolved]
  - Low birth weight baby [Recovered/Resolved]

NARRATIVE: CASE EVENT DATE: 20170515
